FAERS Safety Report 24432462 (Version 1)
Quarter: 2024Q4

REPORT INFORMATION
  Report Type: Report from Study
  Country: DE (occurrence: DE)
  Receive Date: 20241014
  Receipt Date: 20241014
  Transmission Date: 20250115
  Serious: Yes (Other)
  Sender: MYLAN
  Company Number: DE-MYLANLABS-2024M1091134

PATIENT
  Sex: Male

DRUGS (6)
  1. LEVETIRACETAM [Suspect]
     Active Substance: LEVETIRACETAM
     Indication: Seizure
     Dosage: 30 MILLIGRAM/KILOGRAM, QD
     Route: 065
  2. NIFEDIPINE [Suspect]
     Active Substance: NIFEDIPINE
     Indication: Neurodevelopmental disorder
     Dosage: UNK, BID {0.5 MG/KG/D DIVIDED INTO 2 DOSES}
     Route: 048
  3. NIFEDIPINE [Suspect]
     Active Substance: NIFEDIPINE
     Dosage: 3 MILLIGRAM/KILOGRAM, QD
     Route: 048
  4. ISRADIPINE [Suspect]
     Active Substance: ISRADIPINE
     Indication: Neurodevelopmental disorder
     Dosage: UNK UNK, BID {0.02 MG/KG/D IN 2 DOSES}
     Route: 065
  5. ISRADIPINE [Suspect]
     Active Substance: ISRADIPINE
     Indication: Familial tremor
     Dosage: 0.06 MILLIGRAM/KILOGRAM, QD
     Route: 065
  6. ISRADIPINE [Suspect]
     Active Substance: ISRADIPINE
     Indication: Seizure

REACTIONS (5)
  - Hypotension [Unknown]
  - Tachycardia [Unknown]
  - Off label use [Unknown]
  - Drug ineffective [Unknown]
  - Drug ineffective for unapproved indication [Unknown]
